FAERS Safety Report 4883279-1 (Version None)
Quarter: 2006Q1

REPORT INFORMATION
  Report Type: 
  Country: None (occurrence: None)
  Receive Date: 20060113
  Receipt Date: 20051222
  Transmission Date: 20060701
  Serious: Yes (Death)
  Sender: FDA-Public Use
  Company Number: 220916

PATIENT
  Age: 37 Year
  Sex: Female

DRUGS (5)
  1. MABTHERA (RITUXIMAB) CONC FOR SOLUTION FOR INFUSION [Suspect]
     Indication: EPSTEIN-BARR VIRUS INFECTION
     Dosage: 750 MG, X2, INTRAVENOUS
     Route: 042
     Dates: start: 20050105, end: 20050111
  2. VFEND [Suspect]
     Dosage: 800 MG, QD, ORAL
     Route: 048
     Dates: start: 20050103, end: 20050106
  3. GANCICLOVIR SODIUM [Suspect]
     Dosage: 850 MG, QD, INTRAVENOUS
     Route: 042
     Dates: start: 20050104, end: 20050105
  4. CYKLOSPORIN A (CYCLOSPORINE) [Suspect]
     Dosage: ORAL
     Route: 048
     Dates: start: 20050115
  5. MEROPENEM (MEROPENEM) [Concomitant]

REACTIONS (12)
  - ABDOMINAL PAIN [None]
  - ANAPHYLACTIC REACTION [None]
  - BRONCHOSPASM [None]
  - CHOLESTASIS [None]
  - CONFUSIONAL STATE [None]
  - DRUG INTERACTION [None]
  - DRUG LEVEL INCREASED [None]
  - HALLUCINATION [None]
  - HYPERBILIRUBINAEMIA [None]
  - HYPOTONIA [None]
  - MULTI-ORGAN FAILURE [None]
  - RENAL FAILURE [None]
